FAERS Safety Report 18297734 (Version 1)
Quarter: 2020Q3

REPORT INFORMATION
  Report Type: Spontaneous
  Country: FR (occurrence: FR)
  Receive Date: 20200922
  Receipt Date: 20200922
  Transmission Date: 20201103
  Serious: Yes (Hospitalization)
  Sender: FDA-Public Use
  Company Number: FR-MYLANLABS-2020M1079685

PATIENT
  Age: 77 Year
  Sex: Female

DRUGS (12)
  1. CYCLOPHOSPHAMIDE. [Suspect]
     Active Substance: CYCLOPHOSPHAMIDE
     Indication: GLOMERULONEPHRITIS RAPIDLY PROGRESSIVE
     Dosage: SIX PULSES BY DAY
     Route: 042
  2. CYCLOPHOSPHAMIDE. [Suspect]
     Active Substance: CYCLOPHOSPHAMIDE
     Indication: HAEMORRHAGE
     Dosage: UNK
  3. RITUXIMAB. [Suspect]
     Active Substance: RITUXIMAB
     Indication: GLOMERULONEPHRITIS RAPIDLY PROGRESSIVE
     Dosage: 500 MILLIGRAM, EVERY 6 MONTHS
  4. RITUXIMAB. [Suspect]
     Active Substance: RITUXIMAB
     Dosage: UNK
  5. PHENOXYMETHYLPENICILLIN [Suspect]
     Active Substance: PENICILLIN V
     Indication: VASCULITIS
     Dosage: UNK
     Route: 065
  6. RITUXIMAB. [Suspect]
     Active Substance: RITUXIMAB
     Indication: HAEMORRHAGE
     Dosage: 375MG/M2 AT DAY 1 AND DAY 7
     Route: 065
  7. ECULIZUMAB [Suspect]
     Active Substance: ECULIZUMAB
     Dosage: UNK
  8. ECULIZUMAB [Suspect]
     Active Substance: ECULIZUMAB
     Dosage: 900MG PER WEEKLY FOR ONE MONTH
     Route: 065
  9. VORICONAZOLE. [Suspect]
     Active Substance: VORICONAZOLE
     Indication: PROPHYLAXIS
     Dosage: UNK
     Route: 065
  10. CEFTRIAXONE SODIUM. [Suspect]
     Active Substance: CEFTRIAXONE SODIUM
     Indication: PROPHYLAXIS
     Dosage: UNK
     Route: 065
  11. ECULIZUMAB [Suspect]
     Active Substance: ECULIZUMAB
     Dosage: 1200MG BI?MONTHLY
  12. ECULIZUMAB [Suspect]
     Active Substance: ECULIZUMAB
     Indication: VASCULITIS
     Dosage: 500 MILLIGRAM, EVERY 6 MONTHS
     Route: 065

REACTIONS (8)
  - Acute pulmonary oedema [Unknown]
  - Bronchopulmonary aspergillosis [Unknown]
  - Off label use [Unknown]
  - Intentional product use issue [Unknown]
  - Drug effective for unapproved indication [Unknown]
  - Pneumonia bacterial [Unknown]
  - Condition aggravated [Unknown]
  - Influenza [Unknown]
